FAERS Safety Report 17239615 (Version 5)
Quarter: 2020Q4

REPORT INFORMATION
  Report Type: Report from Study
  Country: None (occurrence: FR)
  Receive Date: 20200106
  Receipt Date: 20201030
  Transmission Date: 20210113
  Serious: Yes (Hospitalization, Other)
  Sender: FDA-Public Use
  Company Number: FR-ABBVIE-19P-056-3214584-00

PATIENT
  Age: 4 Year
  Sex: Female
  Weight: 19.1 kg

DRUGS (14)
  1. VENETOCLAX. [Suspect]
     Active Substance: VENETOCLAX
     Indication: RECURRENT CANCER
     Route: 050
     Dates: start: 20191204, end: 20191204
  2. VENETOCLAX. [Suspect]
     Active Substance: VENETOCLAX
     Route: 050
     Dates: start: 20191206, end: 20191227
  3. VENETOCLAX. [Suspect]
     Active Substance: VENETOCLAX
     Route: 050
     Dates: start: 20191229, end: 20200107
  4. CYTARABINE. [Suspect]
     Active Substance: CYTARABINE
     Indication: RECURRENT CANCER
     Route: 042
     Dates: start: 20191207, end: 20191211
  5. ORACILLINE [Concomitant]
     Active Substance: PENICILLIN V
     Indication: ANTIFUNGAL PROPHYLAXIS
     Route: 048
     Dates: start: 20191225, end: 20191228
  6. CYTARABINE. [Suspect]
     Active Substance: CYTARABINE
     Indication: REFRACTORY CANCER
  7. VENETOCLAX. [Suspect]
     Active Substance: VENETOCLAX
     Indication: REFRACTORY CANCER
     Route: 050
     Dates: start: 20191205, end: 20191205
  8. 5% GLUCOSE [Concomitant]
     Active Substance: DEXTROSE
     Indication: PROPHYLAXIS
     Route: 042
     Dates: start: 20191128, end: 20191206
  9. AMBISOME [Concomitant]
     Active Substance: AMPHOTERICIN B
     Indication: PYREXIA
     Route: 042
     Dates: start: 20191127, end: 20191208
  10. SORAFENIB [Concomitant]
     Active Substance: SORAFENIB
     Indication: ACUTE MYELOID LEUKAEMIA
     Dates: start: 20200113
  11. ALLOPURINOL. [Concomitant]
     Active Substance: ALLOPURINOL
     Indication: PROPHYLAXIS
     Dates: start: 20191202, end: 20191206
  12. AMBISOME [Concomitant]
     Active Substance: AMPHOTERICIN B
     Route: 042
     Dates: start: 20191220, end: 20191227
  13. AMBISOME [Concomitant]
     Active Substance: AMPHOTERICIN B
     Indication: INFECTION PROPHYLAXIS
     Route: 042
     Dates: start: 20191209, end: 20191211
  14. VIDAZA [Concomitant]
     Active Substance: AZACITIDINE
     Indication: ACUTE MYELOID LEUKAEMIA
     Dates: start: 20200113

REACTIONS (2)
  - Sepsis [Recovered/Resolved]
  - Aspergillus infection [Recovered/Resolved]

NARRATIVE: CASE EVENT DATE: 20191227
